FAERS Safety Report 17803338 (Version 4)
Quarter: 2022Q1

REPORT INFORMATION
  Report Type: Spontaneous
  Country: US (occurrence: US)
  Receive Date: 20200519
  Receipt Date: 20220201
  Transmission Date: 20220423
  Serious: Yes (Other)
  Sender: FDA-Public Use
  Company Number: US-PFIZER INC-2020197940

PATIENT
  Age: 57 Year
  Sex: Female
  Weight: 69.841 kg

DRUGS (4)
  1. IBRANCE [Suspect]
     Active Substance: PALBOCICLIB
     Indication: Breast cancer metastatic
     Dosage: 125 MG, DAILY, 21 DAYS ON, 1 WEEK OFF
     Dates: start: 201703
  2. IBRANCE [Suspect]
     Active Substance: PALBOCICLIB
     Dosage: 125 MG
     Dates: start: 20210224
  3. ZOLADEX [Concomitant]
     Active Substance: GOSERELIN ACETATE
     Indication: Oestrogen therapy
     Dosage: 25 UG ONCE MONTLY
  4. FASLODEX [Concomitant]
     Active Substance: FULVESTRANT
     Indication: Oestrogen therapy
     Dosage: 500 MG, (2 NEEDLES ADMINISTERED ONCE MONTHLY)

REACTIONS (11)
  - Immunodeficiency [Unknown]
  - Headache [Not Recovered/Not Resolved]
  - Abdominal discomfort [Not Recovered/Not Resolved]
  - Vomiting [Unknown]
  - White blood cell count decreased [Unknown]
  - Neutrophil count decreased [Unknown]
  - Fatigue [Unknown]
  - Sleep apnoea syndrome [Unknown]
  - Anaemia [Unknown]
  - Epigastric discomfort [Unknown]
  - COVID-19 [Unknown]

NARRATIVE: CASE EVENT DATE: 20170301
